FAERS Safety Report 8448461-5 (Version None)
Quarter: 2012Q2

REPORT INFORMATION
  Report Type: 
  Country: None (occurrence: None)
  Receive Date: 20120619
  Receipt Date: 20120612
  Transmission Date: 20120825
  Serious: Yes (Other)
  Sender: FDA-Public Use
  Company Number: BR-BAYER-2012-058563

PATIENT
  Age: 36 Year
  Sex: Female
  Weight: 85 kg

DRUGS (1)
  1. YASMIN [Suspect]
     Indication: CONTRACEPTION
     Dosage: 1 DF, QD
     Route: 048
     Dates: start: 20070101, end: 20120501

REACTIONS (6)
  - PAIN IN EXTREMITY [None]
  - VEIN DISORDER [None]
  - NO ADVERSE EVENT [None]
  - BURNING SENSATION [None]
  - OEDEMA PERIPHERAL [None]
  - MOBILITY DECREASED [None]
